FAERS Safety Report 20258578 (Version 1)
Quarter: 2021Q4

REPORT INFORMATION
  Report Type: Spontaneous
  Country: US (occurrence: None)
  Receive Date: 20211229
  Receipt Date: 20211229
  Transmission Date: 20220303
  Serious: Yes (Hospitalization, Other)
  Sender: FDA-Public Use
  Company Number: None

PATIENT
  Sex: Female
  Weight: 3.6 kg

DRUGS (4)
  1. FETZIMA [Suspect]
     Active Substance: LEVOMILNACIPRAN HYDROCHLORIDE
  2. DESYREL [Suspect]
     Active Substance: TRAZODONE HYDROCHLORIDE
  3. VENTOLIN [Suspect]
     Active Substance: ALBUTEROL SULFATE
  4. EPIPEN [Suspect]
     Active Substance: EPINEPHRINE

REACTIONS (6)
  - Meconium aspiration syndrome [None]
  - Prolonged rupture of membranes [None]
  - Amniotic cavity infection [None]
  - Neonatal respiratory distress syndrome [None]
  - Maternal exposure during pregnancy [None]
  - Foetal exposure during pregnancy [None]

NARRATIVE: CASE EVENT DATE: 20201022
